FAERS Safety Report 6265326-8 (Version None)
Quarter: 2009Q3

REPORT INFORMATION
  Report Type: 
  Country: None (occurrence: None)
  Receive Date: 20090708
  Receipt Date: 20090629
  Transmission Date: 20100115
  Serious: Yes (Death)
  Sender: FDA-Public Use
  Company Number: 001195

PATIENT
  Age: 67 Year
  Sex: Male

DRUGS (4)
  1. ROTIGOTINE       (NEOPRO) [Suspect]
     Indication: PARKINSON'S DISEASE
     Dosage: (2 MG QD TRANSDERMAL), (6 OR 8 MG DAILY TRANSDERMAL)
     Route: 062
     Dates: end: 20090511
  2. ROTIGOTINE       (NEOPRO) [Suspect]
     Indication: PARKINSON'S DISEASE
     Dosage: (2 MG QD TRANSDERMAL), (6 OR 8 MG DAILY TRANSDERMAL)
     Route: 062
     Dates: start: 20090420
  3. STALEVO 100 [Suspect]
     Indication: PARKINSON'S DISEASE
     Dosage: (100 MG 5X/DAY), (50 MG 5X/DAY)
     Dates: end: 20081001
  4. STALEVO 100 [Suspect]
     Indication: PARKINSON'S DISEASE
     Dosage: (100 MG 5X/DAY), (50 MG 5X/DAY)
     Dates: start: 20081001, end: 20090511

REACTIONS (6)
  - ASTHENIA [None]
  - CONFUSIONAL STATE [None]
  - HYPERTENSION [None]
  - PULMONARY HAEMORRHAGE [None]
  - PULMONARY THROMBOSIS [None]
  - TREMOR [None]
